FAERS Safety Report 23999506 (Version 1)
Quarter: 2024Q2

REPORT INFORMATION
  Report Type: Spontaneous
  Country: US (occurrence: US)
  Receive Date: 20240621
  Receipt Date: 20240621
  Transmission Date: 20240716
  Serious: Yes (Life-Threatening, Hospitalization, Other)
  Sender: FDA-Public Use
  Company Number: US-PFIZER INC-202400195016

PATIENT
  Age: 51 Year
  Weight: 65 kg

DRUGS (10)
  1. SUCCINYLCHOLINE CHLORIDE [Suspect]
     Active Substance: SUCCINYLCHOLINE CHLORIDE
     Indication: Anaesthesia
     Dosage: 60 MG
     Route: 042
  2. MORPHINE SULFATE [Suspect]
     Active Substance: MORPHINE SULFATE
     Indication: Premedication
     Dosage: 5 MG
  3. MORPHINE SULFATE [Suspect]
     Active Substance: MORPHINE SULFATE
     Indication: Anaesthesia
  4. LIDOCAINE HYDROCHLORIDE [Suspect]
     Active Substance: LIDOCAINE HYDROCHLORIDE
     Indication: Local anaesthesia
     Dosage: 160 MG; INTRATRACHEAL SPRAY
     Route: 039
  5. DIAZEPAM [Suspect]
     Active Substance: DIAZEPAM
     Indication: Premedication
     Dosage: 10 MG
  6. DIAZEPAM [Suspect]
     Active Substance: DIAZEPAM
     Indication: Anaesthesia
  7. THIOPENTAL [Suspect]
     Active Substance: THIOPENTAL
     Indication: Anaesthesia
     Dosage: 150 MG; IN 3 DIVIDED DOSES OVER A 5-MINUTE PERIOD ABOLISHED THE EYELID REFLEX
  8. HALOTHANE [Suspect]
     Active Substance: HALOTHANE
     Indication: Anaesthesia
     Dosage: UNK; WITH N2O-O2 (2.5:2.5 L/MIN)
  9. ATROPINE [Concomitant]
     Active Substance: ATROPINE\ATROPINE SULFATE
     Indication: Premedication
     Dosage: 0.5 MG
     Route: 030
  10. ATROPINE [Concomitant]
     Active Substance: ATROPINE\ATROPINE SULFATE
     Dosage: 1 MG; AT THE END OF OPERATION

REACTIONS (1)
  - Drug hypersensitivity [Recovering/Resolving]
